FAERS Safety Report 9636980 (Version 2)
Quarter: 2013Q4

REPORT INFORMATION
  Report Type: Spontaneous
  Country: US (occurrence: US)
  Receive Date: 20131022
  Receipt Date: 20131023
  Transmission Date: 20140711
  Serious: Yes (Other)
  Sender: FDA-Public Use
  Company Number: US-RB-058817-13

PATIENT
  Age: 68 Year
  Sex: Female

DRUGS (2)
  1. MUCINEX DM MAXIMUM STRENGTH [Suspect]
     Indication: CHILLS
     Dosage: LAST TOOK ON 07-OCT-2013
     Route: 048
     Dates: start: 20131007
  2. MUCINEX DM MAXIMUM STRENGTH [Suspect]
     Indication: PYREXIA
     Dosage: LAST TOOK ON 07-OCT-2013
     Route: 048
     Dates: start: 20131007

REACTIONS (6)
  - Loss of consciousness [Unknown]
  - Contusion [Not Recovered/Not Resolved]
  - Fall [Unknown]
  - Malaise [Not Recovered/Not Resolved]
  - Nausea [Not Recovered/Not Resolved]
  - Off label use [Recovered/Resolved]
